FAERS Safety Report 17666949 (Version 1)
Quarter: 2020Q2

REPORT INFORMATION
  Report Type: Spontaneous
  Country: US (occurrence: US)
  Receive Date: 20200414
  Receipt Date: 20200414
  Transmission Date: 20200713
  Serious: No
  Sender: FDA-Public Use
  Company Number: US-BIOGEN-2020BI00853618

PATIENT
  Age: 53 Year
  Sex: Female

DRUGS (7)
  1. PLEGRIDY [Suspect]
     Active Substance: PEGINTERFERON BETA-1A
     Route: 058
     Dates: start: 20200329
  2. METHYLPREDNISOLONE. [Concomitant]
     Active Substance: METHYLPREDNISOLONE
     Route: 065
     Dates: start: 20190717
  3. BACLOFEN. [Concomitant]
     Active Substance: BACLOFEN
     Route: 048
     Dates: start: 20190707
  4. PLEGRIDY [Suspect]
     Active Substance: PEGINTERFERON BETA-1A
     Indication: MULTIPLE SCLEROSIS
     Route: 058
     Dates: start: 20171020
  5. BUTALBITAL-ACETAMINOPHEN [Concomitant]
     Route: 048
  6. CLARITIN [Concomitant]
     Active Substance: LORATADINE
     Route: 048
  7. IBUPROFEN. [Concomitant]
     Active Substance: IBUPROFEN
     Route: 048

REACTIONS (22)
  - Amnesia [Unknown]
  - Rotator cuff syndrome [Unknown]
  - Radiculopathy [Unknown]
  - Paraesthesia ear [Unknown]
  - Post concussion syndrome [Unknown]
  - Fatigue [Unknown]
  - Nausea [Unknown]
  - Vertebral foraminal stenosis [Unknown]
  - Intervertebral disc protrusion [Unknown]
  - Photosensitivity reaction [Unknown]
  - Multiple allergies [Unknown]
  - Hypoaesthesia [Unknown]
  - Asthenia [Unknown]
  - Road traffic accident [Recovered/Resolved]
  - Insomnia [Unknown]
  - Vision blurred [Unknown]
  - Mood swings [Unknown]
  - Spinal osteoarthritis [Unknown]
  - Influenza like illness [Recovered/Resolved]
  - Photophobia [Unknown]
  - Nerve injury [Unknown]
  - Headache [Unknown]

NARRATIVE: CASE EVENT DATE: 20200329
